FAERS Safety Report 9677713 (Version 1)
Quarter: 2013Q4

REPORT INFORMATION
  Report Type: Spontaneous
  Country: IL (occurrence: IL)
  Receive Date: 20131108
  Receipt Date: 20131108
  Transmission Date: 20140711
  Serious: Yes (Hospitalization)
  Sender: FDA-Public Use
  Company Number: IL-ASTRAZENECA-2013SE80846

PATIENT
  Age: 60 Year
  Sex: Female

DRUGS (1)
  1. BRILINTA [Suspect]
     Indication: ACUTE MYOCARDIAL INFARCTION
     Route: 048

REACTIONS (2)
  - Thrombosis in device [Unknown]
  - Drug dose omission [Unknown]
